FAERS Safety Report 25104033 (Version 1)
Quarter: 2025Q1

REPORT INFORMATION
  Report Type: Other
  Country: DE (occurrence: DE)
  Receive Date: 20250321
  Receipt Date: 20250321
  Transmission Date: 20250408
  Serious: Yes (Congenital Anomaly, Other)
  Sender: MACLEODS
  Company Number: DE-EMB-M202307675-1

PATIENT

DRUGS (8)
  1. OLANZAPINE [Suspect]
     Active Substance: OLANZAPINE
     Indication: Product used for unknown indication
     Dosage: STRENGTH: 7.5 MG
     Route: 064
     Dates: start: 202306, end: 202309
  2. OLANZAPINE [Suspect]
     Active Substance: OLANZAPINE
     Dosage: REDUCED TO 5 MG/D AT WK 13.1
     Route: 064
     Dates: start: 202309, end: 202310
  3. OLANZAPINE [Suspect]
     Active Substance: OLANZAPINE
     Dosage: FURTHER REDUCED TO 2.5 MG/D AT WK 17.5
     Route: 064
     Dates: start: 202310, end: 202402
  4. ARIPIPRAZOLE [Suspect]
     Active Substance: ARIPIPRAZOLE
     Indication: Product used for unknown indication
     Dosage: FROM WK 9
     Route: 064
     Dates: start: 202306, end: 202308
  5. ARIPIPRAZOLE [Suspect]
     Active Substance: ARIPIPRAZOLE
     Dosage: FROM WK 32.6
     Route: 064
     Dates: start: 202308, end: 202402
  6. ARIPIPRAZOLE [Suspect]
     Active Substance: ARIPIPRAZOLE
     Dosage: FROM WK 38.6
     Route: 064
     Dates: start: 202402, end: 202403
  7. ARIPIPRAZOLE [Suspect]
     Active Substance: ARIPIPRAZOLE
     Route: 064
     Dates: start: 202403, end: 202403
  8. ARIPIPRAZOLE [Suspect]
     Active Substance: ARIPIPRAZOLE
     Dosage: FROM WK 36.6
     Route: 064
     Dates: start: 202402, end: 202403

REACTIONS (5)
  - Polydactyly [Recovered/Resolved]
  - Patent ductus arteriosus [Recovered/Resolved]
  - Pulmonary valve stenosis [Unknown]
  - Atrial septal defect [Recovered/Resolved]
  - Foetal exposure during pregnancy [Unknown]

NARRATIVE: CASE EVENT DATE: 20240401
